FAERS Safety Report 4427895-X (Version None)
Quarter: 2004Q3

REPORT INFORMATION
  Report Type: 
  Country: None (occurrence: None)
  Receive Date: 20040813
  Receipt Date: 20040810
  Transmission Date: 20050211
  Serious: No
  Sender: FDA-Public Use
  Company Number: 2004-BP-04865BP

PATIENT
  Sex: Female

DRUGS (5)
  1. CATAPRES-TTS-3 [Suspect]
     Indication: HYPERTENSION
     Dosage: 0.2 MG (5 MG, 1 PATCH Q WEEK), TO
     Route: 061
     Dates: end: 20040619
  2. LANOXIN [Concomitant]
  3. SYNTHROID [Concomitant]
  4. MAXZIDE [Concomitant]
  5. TAMBOCOR [Concomitant]

REACTIONS (11)
  - APPLICATION SITE BURNING [None]
  - APPLICATION SITE SCAR [None]
  - ASTHENIA [None]
  - BLOOD PRESSURE DECREASED [None]
  - FATIGUE [None]
  - HEART RATE DECREASED [None]
  - MEDICATION ERROR [None]
  - METRORRHAGIA [None]
  - SKIN IRRITATION [None]
  - SOMNOLENCE [None]
  - UTERINE CANCER [None]
